FAERS Safety Report 16099233 (Version 1)
Quarter: 2019Q1

REPORT INFORMATION
  Report Type: Report from Study
  Country: US (occurrence: US)
  Receive Date: 20190321
  Receipt Date: 20190321
  Transmission Date: 20190418
  Serious: Yes (Hospitalization)
  Sender: FDA-Public Use
  Company Number: US-TEVA-2019-US-1027071

PATIENT
  Sex: Female

DRUGS (15)
  1. CISPLATIN. [Suspect]
     Active Substance: CISPLATIN
     Indication: CHEMOTHERAPY
     Dosage: DAY 1: TO GRAVITY IN 1L 0.9% SALINE FLUSHED WITH 500 ML; INFUSIONS
     Route: 033
  2. PACLITAXEL. [Suspect]
     Active Substance: PACLITAXEL
     Indication: OVARIAN CANCER
  3. DOCETAXEL. [Suspect]
     Active Substance: DOCETAXEL
     Indication: OVARIAN CANCER
  4. DEXAMETHASONE. [Concomitant]
     Active Substance: DEXAMETHASONE
     Indication: CHEMOTHERAPY
     Dosage: PRE-CHEMOTHERAPY ON DAY 1
     Route: 042
  5. PALONOSETRON. [Concomitant]
     Active Substance: PALONOSETRON HYDROCHLORIDE
     Dosage: ON DAY 1 AND DAY 8
     Route: 042
  6. DEXAMETHASONE. [Concomitant]
     Active Substance: DEXAMETHASONE
     Indication: CHEMOTHERAPY
     Dosage: ON DAY 0 AND DAY 2-5
     Route: 048
  7. FOSAPREPITANT [Concomitant]
     Active Substance: FOSAPREPITANT
     Indication: CHEMOTHERAPY
     Dosage: ON DAY 1 AND DAY 8
     Route: 042
  8. DOCETAXEL. [Suspect]
     Active Substance: DOCETAXEL
     Indication: CHEMOTHERAPY
     Dosage: DAY 1: ADMINISTERED OVER 1 H
     Route: 041
  9. DIPHENHYDRAMINE. [Concomitant]
     Active Substance: DIPHENHYDRAMINE
     Indication: CHEMOTHERAPY
     Dosage: PRE-CHEMOTHERAPY ON DAY 1 AND DAY 8
     Route: 042
  10. RANITIDINE. [Concomitant]
     Active Substance: RANITIDINE
     Dosage: ON DAY 1 AND DAY 8
     Route: 042
  11. PACLITAXEL. [Suspect]
     Active Substance: PACLITAXEL
     Indication: CHEMOTHERAPY
     Dosage: OVER A PERIOD OF 1 HOUR ON DAY 8 OF EVERY 21 DAYS IN A CYCLE
     Route: 033
  12. PEGFILGRASTIM [Concomitant]
     Active Substance: PEGFILGRASTIM
     Dosage: ON DAY 8
     Route: 058
  13. CISPLATIN. [Suspect]
     Active Substance: CISPLATIN
     Indication: OVARIAN CANCER
  14. SALINE [Concomitant]
     Active Substance: SODIUM CHLORIDE
     Dosage: DAY 1: PRE-HYDRATION
     Route: 042
  15. SALINE [Concomitant]
     Active Substance: SODIUM CHLORIDE
     Dosage: ON DAY 1 AND DAY 8: TO GRAVITY IN 1 L 0.9% SALINE FLUSHED WITH 500 ML 0.9% SALINE AND ADMINISTERE...
     Route: 042

REACTIONS (1)
  - Infusion site infection [Unknown]
